FAERS Safety Report 23891127 (Version 1)
Quarter: 2024Q2

REPORT INFORMATION
  Report Type: Spontaneous
  Country: US (occurrence: US)
  Receive Date: 20240523
  Receipt Date: 20240523
  Transmission Date: 20240715
  Serious: No
  Sender: FDA-Public Use
  Company Number: US-BRISTOL-MYERS SQUIBB COMPANY-2024-080913

PATIENT
  Age: 62 Year
  Sex: Male

DRUGS (2)
  1. OPDIVO [Suspect]
     Active Substance: NIVOLUMAB
     Indication: Prostate cancer
     Dosage: STRENGTH AND PRESENTATION OF THE AE : 240MG VIALS FOR IV SOLUTION FOR INFUSION
     Route: 042
  2. YERVOY [Suspect]
     Active Substance: IPILIMUMAB
     Indication: Prostate cancer
     Dosage: STRENGTH AND PRESENTATION OF THE AE :  50MG X 4 VIALS IV SOLUTION FOR INFUSION
     Route: 042

REACTIONS (2)
  - Treatment noncompliance [Unknown]
  - Off label use [Unknown]
